FAERS Safety Report 7724308-7 (Version None)
Quarter: 2011Q3

REPORT INFORMATION
  Report Type: 
  Country: None (occurrence: None)
  Receive Date: 20110901
  Receipt Date: 20110822
  Transmission Date: 20111222
  Serious: Yes (Hospitalization, Other)
  Sender: FDA-Public Use
  Company Number: FR-NOVOPROD-246918

PATIENT
  Age: 31 Year
  Sex: Male
  Weight: 62 kg

DRUGS (7)
  1. LANTUS [Suspect]
     Indication: TYPE 1 DIABETES MELLITUS
     Dosage: ONCE DAILY
  2. NOVORAPID [Suspect]
     Indication: TYPE 1 DIABETES MELLITUS
     Dosage: 24 IU, QD
     Route: 058
     Dates: start: 20041101
  3. VASTAREL ^BIOPHARMA^ [Concomitant]
     Dosage: 70 MG, QD
     Route: 048
     Dates: start: 20041201
  4. ATORVASTATIN CALCIUM [Concomitant]
     Dosage: 20 MG, UNK
     Route: 048
     Dates: start: 20050101
  5. LEVEMIR [Suspect]
     Indication: TYPE 1 DIABETES MELLITUS
     Dosage: 15 IU, QD
     Dates: start: 20050810, end: 20050812
  6. RAMIPRIL [Concomitant]
     Dosage: 2.5 UNK, QD
     Route: 048
  7. NEUROTON [Concomitant]
     Dosage: 800 MG, QD
     Route: 048

REACTIONS (2)
  - DIABETES MELLITUS INADEQUATE CONTROL [None]
  - TYPE III IMMUNE COMPLEX MEDIATED REACTION [None]
